FAERS Safety Report 17325823 (Version 1)
Quarter: 2020Q1

REPORT INFORMATION
  Report Type: Spontaneous
  Country: US (occurrence: US)
  Receive Date: 20200109
  Receipt Date: 20200109
  Transmission Date: 20200409
  Serious: Yes (Hospitalization)
  Sender: FDA-Public Use
  Company Number: None

PATIENT
  Age: 3 Year
  Sex: Male
  Weight: 21.7 kg

DRUGS (5)
  1. ONCASPAR [Suspect]
     Active Substance: PEGASPARGASE
     Dates: end: 20191222
  2. DEXAMETHASONE. [Suspect]
     Active Substance: DEXAMETHASONE
     Dates: end: 20190102
  3. METHOTREXATE. [Suspect]
     Active Substance: METHOTREXATE
     Dates: end: 20191226
  4. CYTARABINE. [Suspect]
     Active Substance: CYTARABINE
     Dates: end: 20191219
  5. VINCRISTINE SULFATE. [Suspect]
     Active Substance: VINCRISTINE SULFATE
     Dates: end: 20200102

REACTIONS (10)
  - Tachycardia [None]
  - Pyrexia [None]
  - Pain [None]
  - Neutropenia [None]
  - Constipation [None]
  - Rhinorrhoea [None]
  - Abdominal pain [None]
  - Thrombocytopenia [None]
  - Faecaloma [None]
  - Urinary retention [None]

NARRATIVE: CASE EVENT DATE: 20200102
